FAERS Safety Report 25090694 (Version 1)
Quarter: 2025Q1

REPORT INFORMATION
  Report Type: Spontaneous
  Country: US (occurrence: None)
  Receive Date: 20250318
  Receipt Date: 20250318
  Transmission Date: 20250408
  Serious: No
  Sender: FDA-CTU
  Company Number: None

PATIENT
  Age: 56 Year
  Sex: Female
  Weight: 69.75 kg

DRUGS (1)
  1. ESTRADIOL [Suspect]
     Active Substance: ESTRADIOL
     Indication: Vulvovaginal dryness
     Route: 061
     Dates: start: 20250318, end: 20250318

REACTIONS (2)
  - Vulvovaginal burning sensation [None]
  - Application site pain [None]

NARRATIVE: CASE EVENT DATE: 20250317
